FAERS Safety Report 6944456-9 (Version None)
Quarter: 2010Q3

REPORT INFORMATION
  Report Type: 
  Country: None (occurrence: None)
  Receive Date: 20100827
  Receipt Date: 20100817
  Transmission Date: 20110219
  Serious: Yes (Other)
  Sender: FDA-Public Use
  Company Number: JP-PFIZER INC-2010098830

PATIENT
  Age: 50 Year
  Sex: Female

DRUGS (5)
  1. AROMASIN [Suspect]
     Indication: BREAST CANCER
     Dosage: UNK
     Route: 048
     Dates: start: 20070101
  2. LIMAS [Concomitant]
     Route: 048
  3. SEROQUEL [Concomitant]
     Route: 048
  4. CALONAL [Concomitant]
  5. MYONAL [Concomitant]
     Route: 048

REACTIONS (1)
  - DEPRESSIVE SYMPTOM [None]
